FAERS Safety Report 7465983-4 (Version None)
Quarter: 2011Q2

REPORT INFORMATION
  Report Type: 
  Country: None (occurrence: None)
  Receive Date: 20110509
  Receipt Date: 20101111
  Transmission Date: 20111010
  Serious: No
  Sender: FDA-Public Use
  Company Number: US-ALEXION-A200900324

PATIENT
  Sex: Male

DRUGS (1)
  1. SOLIRIS [Suspect]
     Dosage: UNK

REACTIONS (4)
  - ARTHRALGIA [None]
  - MUSCULOSKELETAL DISCOMFORT [None]
  - BACK PAIN [None]
  - LIGAMENT SPRAIN [None]
